FAERS Safety Report 4367150-X (Version None)
Quarter: 2004Q2

REPORT INFORMATION
  Report Type: 
  Country: None (occurrence: None)
  Receive Date: 20040524
  Receipt Date: 20040513
  Transmission Date: 20050107
  Serious: Yes (Death)
  Sender: FDA-Public Use
  Company Number: 04H-163-0260808-00

PATIENT
  Age: 2 Year
  Sex: Male

DRUGS (3)
  1. LIDOCAINE HYDROCHLORIDE [Suspect]
     Indication: ANAESTHESIA
  2. CHLORAL HYDRATE [Suspect]
     Dosage: 95 MG/KG, PER ORAL
     Route: 048
  3. NITROUS OXIDE [Suspect]
     Indication: ANAESTHESIA

REACTIONS (6)
  - ACCIDENTAL OVERDOSE [None]
  - CARDIO-RESPIRATORY ARREST [None]
  - DEPRESSED LEVEL OF CONSCIOUSNESS [None]
  - DRUG INEFFECTIVE [None]
  - DRUG INTERACTION POTENTIATION [None]
  - DRUG TOXICITY [None]
